FAERS Safety Report 21116429 (Version 2)
Quarter: 2022Q3

REPORT INFORMATION
  Report Type: Other
  Country: US (occurrence: None)
  Receive Date: 20220722
  Receipt Date: 20220802
  Transmission Date: 20221026
  Serious: No
  Sender: FDA-Public Use
  Company Number: US-ROCHE-3144042

PATIENT
  Age: 43 Year
  Sex: Male
  Weight: 136.20 kg

DRUGS (1)
  1. OCREVUS [Suspect]
     Active Substance: OCRELIZUMAB
     Indication: Relapsing-remitting multiple sclerosis
     Dosage: 300 MG EVERY 2 WEEKS, THEN 600 MG EVERY 6 MONTHS DATE OF TREATMENT:29/DEC/2021,11/JUN/2021
     Route: 042
     Dates: start: 20210528

REACTIONS (1)
  - COVID-19 [Recovered/Resolved]

NARRATIVE: CASE EVENT DATE: 20220323
